FAERS Safety Report 5075100-6 (Version None)
Quarter: 2006Q3

REPORT INFORMATION
  Report Type: 
  Country: None (occurrence: None)
  Receive Date: 20060803
  Receipt Date: 20060803
  Transmission Date: 20061208
  Serious: Yes (Other)
  Sender: FDA-Public Use
  Company Number: None

PATIENT
  Age: 48 Year
  Sex: Male
  Weight: 190.5108 kg

DRUGS (1)
  1. ZOSYN [Suspect]
     Indication: WOUND INFECTION PSEUDOMONAS
     Dosage: 4.5GM  Q8H   IV BOLUS
     Route: 040
     Dates: start: 20060627, end: 20060721

REACTIONS (1)
  - NEUTROPENIA [None]
